FAERS Safety Report 6945918-0 (Version None)
Quarter: 2010Q3

REPORT INFORMATION
  Report Type: 
  Country: None (occurrence: None)
  Receive Date: 20100827
  Receipt Date: 20100819
  Transmission Date: 20110219
  Serious: Yes (Other)
  Sender: FDA-Public Use
  Company Number: Z0005293A

PATIENT
  Sex: Male
  Weight: 80 kg

DRUGS (4)
  1. OFATUMUMAB [Suspect]
     Route: 042
     Dates: start: 20091102, end: 20100623
  2. CHLORAMBUCIL [Suspect]
     Route: 048
     Dates: start: 20091102, end: 20100629
  3. COTRIM [Concomitant]
     Indication: INFECTION PROPHYLAXIS
     Dosage: 200MG PER DAY
     Route: 048
     Dates: start: 20091104, end: 20100810
  4. FOLINIC ACID [Concomitant]
     Indication: INFECTION PROPHYLAXIS
     Dosage: 7.5MG PER DAY
     Route: 048
     Dates: start: 20091104, end: 20100810

REACTIONS (1)
  - NEUTROPENIA [None]
